FAERS Safety Report 25464616 (Version 3)
Quarter: 2025Q4

REPORT INFORMATION
  Report Type: Spontaneous
  Country: GB (occurrence: GB)
  Receive Date: 20250621
  Receipt Date: 20251021
  Transmission Date: 20260119
  Serious: Yes (Hospitalization, Other)
  Sender: ALEXION PHARMACEUTICALS
  Company Number: GB-AstraZeneca-CH-00893574A

PATIENT
  Age: 84 Year
  Sex: Female
  Weight: 46 kg

DRUGS (3)
  1. DAPAGLIFLOZIN [Suspect]
     Active Substance: DAPAGLIFLOZIN
     Indication: Cardiac disorder
     Dosage: 10 MILLIGRAM, QD
     Route: 065
     Dates: start: 202409, end: 20250221
  2. RAMIPRIL [Concomitant]
     Active Substance: RAMIPRIL
     Indication: Myocardial ischaemia
     Dosage: 25 MILLIGRAM
  3. ATORVASTATIN [Concomitant]
     Active Substance: ATORVASTATIN
     Dosage: 40 MILLIGRAM

REACTIONS (21)
  - Myocardial infarction [Recovered/Resolved]
  - Lower limb fracture [Unknown]
  - Spinal fracture [Unknown]
  - Hip fracture [Unknown]
  - Fall [Unknown]
  - Lower respiratory tract infection [Unknown]
  - Cardiac failure [Unknown]
  - Dementia [Unknown]
  - Dyspnoea [Unknown]
  - Confusional state [Not Recovered/Not Resolved]
  - Weight decreased [Recovered/Resolved with Sequelae]
  - Abdominal pain upper [Unknown]
  - Illness [Recovered/Resolved]
  - Insomnia [Recovered/Resolved]
  - Panic attack [Unknown]
  - Fatigue [Unknown]
  - Muscle atrophy [Unknown]
  - Asthma [Unknown]
  - Cardiac disorder [Unknown]
  - Vomiting [Unknown]
  - Infection [Unknown]

NARRATIVE: CASE EVENT DATE: 20250422
